FAERS Safety Report 13763634 (Version 10)
Quarter: 2019Q4

REPORT INFORMATION
  Report Type: Spontaneous
  Country: KR (occurrence: KR)
  Receive Date: 20170718
  Receipt Date: 20191122
  Transmission Date: 20200122
  Serious: Yes (Other)
  Sender: FDA-Public Use
  Company Number: KR-009507513-1707KOR004097

PATIENT
  Age: 34 Year
  Sex: Male
  Weight: 70.5 kg

DRUGS (12)
  1. LEUSTATIN [Concomitant]
     Active Substance: CLADRIBINE
     Indication: ACUTE MYELOID LEUKAEMIA RECURRENT
     Dosage: 9.5 MILLIGRAM, QD
     Route: 042
     Dates: start: 20170218, end: 20170222
  2. MITRON [Concomitant]
     Indication: ACUTE MYELOID LEUKAEMIA RECURRENT
     Dosage: 19 MILLIGRAM, QD
     Route: 042
     Dates: start: 20170218, end: 20170220
  3. NOXAFIL [Suspect]
     Active Substance: POSACONAZOLE
     Indication: ANTIFUNGAL PROPHYLAXIS
     Dosage: 300 MG, TWICE A DAY
     Route: 048
     Dates: start: 20170218, end: 20170218
  4. NOXAFIL [Suspect]
     Active Substance: POSACONAZOLE
     Dosage: 300 MG, ONCE DAILY
     Route: 048
     Dates: start: 20170219, end: 20170226
  5. SEPTRIN [Concomitant]
     Active Substance: SULFAMETHOXAZOLE\TRIMETHOPRIM
     Indication: INFECTION PROPHYLAXIS
     Dosage: 1 TABLET, ONCE DAILY (QD)
     Route: 048
     Dates: start: 20170216
  6. LINBACTAM [Concomitant]
     Indication: PYREXIA
     Dosage: 4.5 G, QID
     Route: 042
     Dates: start: 20170217, end: 20170223
  7. CYTARABINE. [Concomitant]
     Active Substance: CYTARABINE
     Indication: ACUTE MYELOID LEUKAEMIA RECURRENT
     Dosage: 3780 MG, QD. FORMULATION: 3G/60ML
     Route: 042
     Dates: start: 20170218, end: 20170222
  8. LEUCOSTIM [Concomitant]
     Active Substance: FILGRASTIM
     Indication: PROPHYLAXIS
     Dosage: 450 MICROGRAM (ONCE DAILY), QD. FORMULATION: 300MCG/1.2ML
     Route: 058
     Dates: start: 20170217, end: 20170222
  9. URSA TABLETS [Concomitant]
     Indication: LIVER FUNCTION TEST INCREASED
     Dosage: (1 TABLET, THREE TIMES DAY (TID)
     Route: 048
  10. LEGALON [Concomitant]
     Active Substance: DIETARY SUPPLEMENT\HERBALS\MILK THISTLE
     Indication: LIVER FUNCTION TEST INCREASED
     Dosage: 1 CAPSULE, (TWICE A DAY) BID
     Route: 048
  11. ENTECAVIR. [Concomitant]
     Active Substance: ENTECAVIR
     Indication: INFECTION PROPHYLAXIS
     Dosage: (1 TABLET, ONCE DAILY (QD)
     Route: 048
  12. IRCODON [Concomitant]
     Active Substance: OXYCODONE HYDROCHLORIDE
     Indication: CHEST PAIN
     Dosage: (1 TABLET, ONCE DAILY (QD)
     Route: 048
     Dates: start: 20170215, end: 20170217

REACTIONS (4)
  - Febrile neutropenia [Recovered/Resolved]
  - Rhinalgia [Recovered/Resolved]
  - Muscular weakness [Recovered/Resolved]
  - Epistaxis [Recovered/Resolved]

NARRATIVE: CASE EVENT DATE: 20170221
